FAERS Safety Report 20296834 (Version 1)
Quarter: 2022Q1

REPORT INFORMATION
  Report Type: Spontaneous
  Country: US (occurrence: None)
  Receive Date: 20220105
  Receipt Date: 20220105
  Transmission Date: 20220423
  Serious: No
  Sender: FDA-Public Use
  Company Number: US-ROCHE-2890178

PATIENT
  Age: 5 Year
  Sex: Male
  Weight: 21.5 kg

DRUGS (2)
  1. HEMLIBRA [Suspect]
     Active Substance: EMICIZUMAB-KXWH
     Indication: Factor VIII deficiency
     Dosage: 37.5MG DOSE; CONCENTRATION 60MG/0.4ML
     Route: 058
     Dates: start: 20210615
  2. TYLENOL [Concomitant]
     Active Substance: ACETAMINOPHEN
     Dosage: OVER THE COUNTER

REACTIONS (3)
  - Contusion [Not Recovered/Not Resolved]
  - Haemorrhage [Not Recovered/Not Resolved]
  - Drug ineffective [Unknown]

NARRATIVE: CASE EVENT DATE: 20210713
